FAERS Safety Report 19521981 (Version 2)
Quarter: 2021Q3

REPORT INFORMATION
  Report Type: Spontaneous
  Country: JP (occurrence: JP)
  Receive Date: 20210712
  Receipt Date: 20210811
  Transmission Date: 20211014
  Serious: No
  Sender: FDA-Public Use
  Company Number: JP-MYLANLABS-2021M1040339

PATIENT
  Age: 38 Year
  Sex: Female

DRUGS (1)
  1. TAMOXIFEN TABLETS 10MG ^MYL^ [Suspect]
     Active Substance: TAMOXIFEN
     Indication: PRODUCT USED FOR UNKNOWN INDICATION
     Route: 048

REACTIONS (1)
  - No adverse event [Recovered/Resolved]
